FAERS Safety Report 25061029 (Version 1)
Quarter: 2025Q1

REPORT INFORMATION
  Report Type: Report from Study
  Country: US (occurrence: US)
  Receive Date: 20250310
  Receipt Date: 20250310
  Transmission Date: 20250409
  Serious: Yes (Death, Hospitalization)
  Sender: EISAI
  Company Number: US-Eisai-EC-2025-184906

PATIENT
  Age: 65 Year
  Sex: Male
  Weight: 91.3 kg

DRUGS (32)
  1. LENVATINIB [Suspect]
     Active Substance: LENVATINIB
     Indication: Anaplastic thyroid cancer
     Dates: start: 20250106, end: 20250113
  2. PEMBROLIZUMAB [Suspect]
     Active Substance: PEMBROLIZUMAB
     Indication: Anaplastic thyroid cancer
     Dates: start: 20230918, end: 20241230
  3. AMLODIPINE [Concomitant]
     Active Substance: AMLODIPINE BESYLATE
     Indication: Hypertension
     Dates: start: 2016, end: 20250106
  4. ASPIRIN [Concomitant]
     Active Substance: ASPIRIN
     Indication: Coronary artery disease
     Dates: end: 20250108
  5. XALATAN [Concomitant]
     Active Substance: LATANOPROST
  6. SYNTHROID [Concomitant]
     Active Substance: LEVOTHYROXINE SODIUM
     Indication: Hypothyroidism
     Dates: start: 202001
  7. LORATADINE [Concomitant]
     Active Substance: LORATADINE
     Indication: Seasonal allergy
     Dates: start: 202212
  8. LORAZEPAM [Concomitant]
     Active Substance: LORAZEPAM
     Indication: Anxiety
     Dates: start: 20231101
  9. PROTONIX [Concomitant]
     Active Substance: PANTOPRAZOLE SODIUM
     Indication: Dyspepsia
     Dates: start: 202212
  10. KENALOG [Concomitant]
     Active Substance: TRIAMCINOLONE ACETONIDE
     Indication: Eczema
     Dates: start: 201809
  11. AMARYL [Concomitant]
     Active Substance: GLIMEPIRIDE
     Indication: Diabetes mellitus
     Dates: start: 2008
  12. AMARYL [Concomitant]
     Active Substance: GLIMEPIRIDE
     Dates: start: 20241204
  13. DAPAGLIFLOZIN [Concomitant]
     Active Substance: DAPAGLIFLOZIN
     Indication: Diabetes mellitus
     Dates: start: 2008
  14. ALBUTEROL SULFATE [Concomitant]
     Active Substance: ALBUTEROL SULFATE
     Indication: Dyspnoea
     Dates: start: 201402
  15. SILDENAFIL [Concomitant]
     Active Substance: SILDENAFIL
     Indication: Erectile dysfunction
     Dates: start: 2022
  16. CYANOCOBALAMIN [Concomitant]
     Active Substance: CYANOCOBALAMIN
     Indication: Supplementation therapy
     Dates: start: 202212
  17. LACTOBACILLUS RHAMNOSUS [Concomitant]
     Active Substance: LACTOBACILLUS RHAMNOSUS
     Indication: Supplementation therapy
     Dosage: DOSE: 10 BILLION CELL
     Dates: start: 202212
  18. AYR OCEAN [Concomitant]
     Indication: Seasonal allergy
     Dates: start: 202212
  19. ROSUVASTATIN [Concomitant]
     Active Substance: ROSUVASTATIN
     Indication: Hyperlipidaemia
     Dates: start: 2014
  20. VITAMIN D3 [Concomitant]
     Active Substance: CHOLECALCIFEROL
     Indication: Supplementation therapy
     Dosage: DOSE: 1000 IY
     Dates: start: 20240108
  21. VITAMIN B12 [Concomitant]
     Active Substance: CYANOCOBALAMIN
     Indication: Supplementation therapy
     Dates: start: 20240108
  22. DIPHENHYDRAMIN/LIDOCAINE [Concomitant]
     Indication: Pain
     Dates: start: 20240125
  23. MAALOX ANTACID [Concomitant]
     Active Substance: ALUMINUM HYDROXIDE\DIMETHICONE\MAGNESIUM HYDROXIDE
     Indication: Pain
     Dates: start: 20240125
  24. AQUAPHOR [Concomitant]
     Active Substance: PETROLATUM
     Indication: Skin disorder
     Dates: start: 20241205
  25. TYLENOL [Concomitant]
     Active Substance: ACETAMINOPHEN
     Indication: Pain
     Dates: start: 20240115
  26. LIDOCAINE VISCOUS [Concomitant]
     Active Substance: LIDOCAINE HYDROCHLORIDE
     Indication: Pain
     Dates: start: 20240220
  27. FLOMAX [Concomitant]
     Active Substance: TAMSULOSIN HYDROCHLORIDE
     Indication: Nephrolithiasis
     Dates: start: 20240609
  28. ZOFRAN [Concomitant]
     Active Substance: ONDANSETRON HYDROCHLORIDE
     Indication: Nausea
  29. ZOFRAN [Concomitant]
     Active Substance: ONDANSETRON HYDROCHLORIDE
     Indication: Vomiting
  30. LUMIGAN [Concomitant]
     Active Substance: BIMATOPROST
     Dates: start: 20241212
  31. TRAMETINIB [Concomitant]
     Active Substance: TRAMETINIB
     Indication: Anaplastic thyroid cancer
     Dates: start: 20230818, end: 20240910
  32. DABRAFENIB [Concomitant]
     Active Substance: DABRAFENIB
     Indication: Anaplastic thyroid cancer
     Dates: start: 20230818

REACTIONS (5)
  - Blood bilirubin increased [Fatal]
  - Alanine aminotransferase increased [Fatal]
  - Blood alkaline phosphatase increased [Fatal]
  - Aspartate aminotransferase increased [Fatal]
  - Malignant neoplasm progression [Fatal]

NARRATIVE: CASE EVENT DATE: 20250114
